FAERS Safety Report 4722351-3 (Version None)
Quarter: 2005Q3

REPORT INFORMATION
  Report Type: 
  Country: None (occurrence: None)
  Receive Date: 20050722
  Receipt Date: 20050307
  Transmission Date: 20060218
  Serious: No
  Sender: FDA-Public Use
  Company Number: US-GLAXOSMITHKLINE-A0548607A

PATIENT
  Age: 2 Month
  Sex: Female

DRUGS (6)
  1. AVANDIA [Suspect]
     Dosage: 2MG TWICE PER DAY
     Route: 048
     Dates: start: 20041101
  2. GLUCOVANCE [Concomitant]
  3. BENICAR [Concomitant]
  4. TRANXENE [Concomitant]
  5. PRAVACHOL [Concomitant]
  6. PROTONIX [Concomitant]

REACTIONS (8)
  - BLOOD GLUCOSE INCREASED [None]
  - DRY MOUTH [None]
  - DYSGEUSIA [None]
  - FATIGUE [None]
  - FLUSHING [None]
  - HEADACHE [None]
  - SWELLING [None]
  - WEIGHT INCREASED [None]
